FAERS Safety Report 7540767-7 (Version None)
Quarter: 2011Q2

REPORT INFORMATION
  Report Type: 
  Country: None (occurrence: None)
  Receive Date: 20110603
  Receipt Date: 20110518
  Transmission Date: 20111010
  Serious: Yes (Disabling)
  Sender: FDA-Public Use
  Company Number: GB-DEXPHARM-20110566

PATIENT
  Age: 70 Year
  Sex: Male
  Weight: 79 kg

DRUGS (12)
  1. FUROSEMIDE [Concomitant]
  2. OMEPRAZOLE [Suspect]
     Dosage: 20 MG MILLIGRAM(S)
     Route: 048
  3. AMLODIPINE [Concomitant]
  4. CANDESARTAN CILEXETIL [Concomitant]
  5. FERROUS SULFATE TAB [Concomitant]
  6. SIMVASTATIN [Concomitant]
  7. ALFACALCIDOL [Concomitant]
  8. PHOS-EX [Concomitant]
  9. FEBUXOSTAT [Suspect]
     Indication: GOUT
     Dosage: 40 MG MILLIGRAM(S)
     Route: 048
     Dates: start: 20110201, end: 20110309
  10. DARBEPOETIN ALFA [Concomitant]
  11. ATENOLOL [Concomitant]
  12. DOXAZOSIN MESYLATE [Concomitant]

REACTIONS (3)
  - RENAL FAILURE [None]
  - CONDITION AGGRAVATED [None]
  - HAEMODIALYSIS [None]
